FAERS Safety Report 7715816-3 (Version None)
Quarter: 2011Q3

REPORT INFORMATION
  Report Type: 
  Country: None (occurrence: None)
  Receive Date: 20110829
  Receipt Date: 20110829
  Transmission Date: 20111222
  Serious: Yes (Other)
  Sender: FDA-Public Use
  Company Number: None

PATIENT
  Sex: Female

DRUGS (1)
  1. HUMIRA [Suspect]
     Indication: CROHN'S DISEASE
     Dosage: 40MG
     Route: 058

REACTIONS (4)
  - INJECTION SITE SWELLING [None]
  - VISION BLURRED [None]
  - DYSPNOEA [None]
  - DIZZINESS [None]
